FAERS Safety Report 11320211 (Version 6)
Quarter: 2016Q2

REPORT INFORMATION
  Report Type: Report from Study
  Country: US (occurrence: US)
  Receive Date: 20150729
  Receipt Date: 20160502
  Transmission Date: 20160815
  Serious: Yes (Hospitalization, Other)
  Sender: FDA-Public Use
  Company Number: US-SA-2015SA057237

PATIENT
  Age: 40 Year
  Sex: Female

DRUGS (2)
  1. TYLENOL [Suspect]
     Active Substance: ACETAMINOPHEN
     Route: 065
  2. LEMTRADA [Suspect]
     Active Substance: ALEMTUZUMAB
     Indication: MULTIPLE SCLEROSIS
     Route: 041
     Dates: start: 20150406, end: 20150410

REACTIONS (12)
  - Renal failure [Recovered/Resolved]
  - Coma [Recovered/Resolved]
  - Nausea [Unknown]
  - Malaise [Unknown]
  - Tear discolouration [Not Recovered/Not Resolved]
  - Blood iron decreased [Unknown]
  - Skin discolouration [Not Recovered/Not Resolved]
  - Hepatic failure [Recovered/Resolved]
  - Circulatory collapse [Unknown]
  - Ill-defined disorder [Not Recovered/Not Resolved]
  - Sepsis [Unknown]
  - Headache [Unknown]

NARRATIVE: CASE EVENT DATE: 2015
